FAERS Safety Report 17374233 (Version 1)
Quarter: 2020Q1

REPORT INFORMATION
  Report Type: Spontaneous
  Country: US (occurrence: US)
  Receive Date: 20200121
  Receipt Date: 20200121
  Transmission Date: 20200409
  Serious: Yes (Hospitalization)
  Sender: FDA-Public Use
  Company Number: None

PATIENT
  Age: 44 Year
  Sex: Female

DRUGS (19)
  1. BUT/APAP/CAF [Concomitant]
  2. PENTAZ/NALOX [Concomitant]
  3. PROMETH/COD [Concomitant]
  4. ACETAZOLAMID [Concomitant]
     Active Substance: ACETAZOLAMIDE
  5. DOXYCYCL HYC [Concomitant]
  6. SODIUM CHLOR NEB 7% [Concomitant]
  7. QUETIAPINE. [Concomitant]
     Active Substance: QUETIAPINE
  8. BENZONATATE. [Concomitant]
     Active Substance: BENZONATATE
  9. OXYCODONE [Concomitant]
     Active Substance: OXYCODONE
  10. PULMOZYME [Concomitant]
     Active Substance: DORNASE ALFA
  11. ONDANSETRON [Concomitant]
     Active Substance: ONDANSETRON
  12. PROMETHAZINE [Concomitant]
     Active Substance: PROMETHAZINE HYDROCHLORIDE
  13. AZITHROMYCIN ANHYDROUS. [Concomitant]
     Active Substance: AZITHROMYCIN ANHYDROUS
  14. METHOCARBAM [Concomitant]
     Active Substance: METHOCARBAMOL
  15. TRAMADOL HCL [Concomitant]
     Active Substance: TRAMADOL HYDROCHLORIDE
  16. ALBUTEROL. [Concomitant]
     Active Substance: ALBUTEROL
  17. TOBRAMYCIN  300MG/5ML 20ML NEB [Suspect]
     Active Substance: TOBRAMYCIN
     Indication: BRONCHIECTASIS
     Route: 055
  18. ACETYLCYST [Concomitant]
  19. NAPROXEN SOD [Concomitant]

REACTIONS (1)
  - Hospitalisation [None]

NARRATIVE: CASE EVENT DATE: 20200116
